FAERS Safety Report 21016454 (Version 1)
Quarter: 2022Q2

REPORT INFORMATION
  Report Type: Spontaneous
  Country: US (occurrence: None)
  Receive Date: 20220627
  Receipt Date: 20220627
  Transmission Date: 20220721
  Serious: Yes (Life-Threatening, Hospitalization)
  Sender: FDA-Public Use
  Company Number: None

PATIENT
  Age: 75 Year
  Sex: Male

DRUGS (1)
  1. DALBAVANCIN [Suspect]
     Active Substance: DALBAVANCIN
     Indication: Post procedural infection
     Dosage: FREQUENCY : ONCE;?
     Route: 042
     Dates: start: 20220608, end: 20220608

REACTIONS (3)
  - International normalised ratio abnormal [None]
  - Hepatic enzyme increased [None]
  - Liver injury [None]

NARRATIVE: CASE EVENT DATE: 20220611
